FAERS Safety Report 8918830 (Version 1)
Quarter: 2012Q4

REPORT INFORMATION
  Report Type: Spontaneous
  Country: US (occurrence: None)
  Receive Date: 20121115
  Receipt Date: 20121115
  Transmission Date: 20130627
  Serious: Yes (Life-Threatening, Hospitalization, Disabling, Other)
  Sender: FDA-Public Use
  Company Number: None

PATIENT
  Age: 46 Year
  Sex: Male
  Weight: 83.92 kg

DRUGS (1)
  1. BOTOX 200 UNITS ALLERGAN [Suspect]
     Indication: HEADACHE
     Dates: start: 20120604

REACTIONS (17)
  - Panic attack [None]
  - Heart rate increased [None]
  - Apparent death [None]
  - Weight decreased [None]
  - Anxiety [None]
  - Palpitations [None]
  - Chest pain [None]
  - Chest discomfort [None]
  - Insomnia [None]
  - Gastrointestinal disorder [None]
  - Nervous system disorder [None]
  - Quality of life decreased [None]
  - Influenza like illness [None]
  - Tremor [None]
  - Toxicity to various agents [None]
  - Feeling abnormal [None]
  - Abdominal pain [None]
